FAERS Safety Report 7833736-0 (Version None)
Quarter: 2011Q4

REPORT INFORMATION
  Report Type: 
  Country: None (occurrence: None)
  Receive Date: 20111024
  Receipt Date: 20111017
  Transmission Date: 20120403
  Serious: Yes (Death, Other)
  Sender: FDA-Public Use
  Company Number: US-BAYER-201041940NA

PATIENT
  Age: 76 Year
  Sex: Female
  Weight: 87.982 kg

DRUGS (16)
  1. TRASYLOL [Suspect]
     Indication: CORONARY ARTERY BYPASS
     Dosage: APROTININ 3 - 200 ML VIALS
     Route: 042
     Dates: start: 20061010
  2. ZOCOR [Concomitant]
     Dosage: 40 MG, QD
     Route: 048
  3. RED BLOOD CELLS [Concomitant]
     Dosage: UNK
     Dates: start: 20061010
  4. TRASYLOL [Suspect]
     Dosage: 200 ML APROTININ PRIME
     Route: 042
  5. DOBUTREX [Concomitant]
  6. PREDNISONE [Concomitant]
     Dosage: 10 MG, QD
     Route: 048
  7. PLAQUENIL [Concomitant]
     Dosage: 200 MG, QD
     Route: 048
  8. ACETYLSALICYLIC ACID SRT [Concomitant]
     Dosage: 81 MG, QD
     Route: 048
  9. PRILOSEC [Concomitant]
     Dosage: 20 MG, UNK
     Route: 048
  10. NITROGLYCERIN [Concomitant]
  11. PLASMA [Concomitant]
  12. ATENOLOL [Concomitant]
     Dosage: 25 MG, QD
     Route: 048
  13. FENTANYL [Concomitant]
  14. QUINAPRIL [Concomitant]
     Dosage: 20 MG, QD
     Route: 048
  15. DYAZIDE [Concomitant]
     Dosage: 37.5/25CP DAILY
     Route: 048
  16. HEPARIN [Concomitant]

REACTIONS (14)
  - STRESS [None]
  - MULTI-ORGAN FAILURE [None]
  - RENAL IMPAIRMENT [None]
  - RENAL INJURY [None]
  - RENAL DISORDER [None]
  - MENTAL DISORDER [None]
  - RENAL FAILURE [None]
  - DEATH [None]
  - UNEVALUABLE EVENT [None]
  - FEAR [None]
  - ANXIETY [None]
  - EMOTIONAL DISORDER [None]
  - PAIN [None]
  - INJURY [None]
